FAERS Safety Report 9832938 (Version 3)
Quarter: 2014Q1

REPORT INFORMATION
  Report Type: Spontaneous
  Country: US (occurrence: US)
  Receive Date: 20140121
  Receipt Date: 20140318
  Transmission Date: 20141002
  Serious: Yes (Hospitalization)
  Sender: FDA-Public Use
  Company Number: PHHY2014US004344

PATIENT
  Age: 31 Year
  Sex: Male

DRUGS (3)
  1. BUPROPION [Suspect]
  2. DEXTROMETHORPHAN [Concomitant]
  3. CHLORPHENAMINE [Concomitant]

REACTIONS (22)
  - Mental status changes [Recovered/Resolved]
  - Cardiotoxicity [Recovered/Resolved]
  - Status epilepticus [Recovered/Resolved]
  - Grand mal convulsion [Recovered/Resolved]
  - Lethargy [Recovered/Resolved]
  - Shock [Recovered/Resolved]
  - Laceration [Recovered/Resolved]
  - Hypotension [Recovered/Resolved]
  - Chorea [Recovered/Resolved]
  - Mydriasis [Recovered/Resolved]
  - Pupillary reflex impaired [Recovered/Resolved]
  - Ventricular extrasystoles [Recovered/Resolved]
  - Atrial fibrillation [Recovered/Resolved]
  - Drug level increased [Recovered/Resolved]
  - Sinus tachycardia [Recovered/Resolved]
  - Confusional state [Recovered/Resolved]
  - Electrocardiogram QRS complex prolonged [Recovered/Resolved]
  - Pyrexia [Recovered/Resolved]
  - Electrocardiogram QT prolonged [Recovered/Resolved]
  - Memory impairment [Recovered/Resolved]
  - Muscle twitching [Recovered/Resolved]
  - Intentional overdose [Unknown]
